FAERS Safety Report 6326719-3 (Version None)
Quarter: 2009Q3

REPORT INFORMATION
  Report Type: 
  Country: None (occurrence: None)
  Receive Date: 20090825
  Receipt Date: 20090814
  Transmission Date: 20100115
  Serious: Yes (Other)
  Sender: FDA-Public Use
  Company Number: CN-ROCHE-650093

PATIENT
  Age: 50 Year
  Sex: Female

DRUGS (2)
  1. XELODA [Suspect]
     Indication: BREAST CANCER
     Dosage: FIVE CYCLES TOTALLY RECEIVED.
     Route: 048
     Dates: start: 20070101, end: 20070101
  2. XELODA [Suspect]
     Route: 048
     Dates: start: 20090813

REACTIONS (3)
  - BREAST CANCER METASTATIC [None]
  - BREAST CANCER RECURRENT [None]
  - HAEMATURIA [None]
